FAERS Safety Report 9825734 (Version 1)
Quarter: 2013Q4

REPORT INFORMATION
  Report Type: Spontaneous
  Country: US (occurrence: None)
  Receive Date: 20131028
  Receipt Date: 20131028
  Transmission Date: 20140711
  Serious: Yes (Other)
  Sender: FDA-Public Use
  Company Number: 2013US001951

PATIENT
  Age: 76 Year
  Sex: Male
  Weight: 90 kg

DRUGS (1)
  1. ICLUSIG [Suspect]
     Route: 048
     Dates: start: 20130608

REACTIONS (3)
  - Ear discomfort [None]
  - Headache [None]
  - Fatigue [None]
